FAERS Safety Report 8627148 (Version 4)
Quarter: 2013Q2

REPORT INFORMATION
  Report Type: Spontaneous
  Country: US (occurrence: US)
  Receive Date: 20120621
  Receipt Date: 20130411
  Transmission Date: 20140414
  Serious: Yes (Hospitalization)
  Sender: FDA-Public Use
  Company Number: US-BIOGENIDEC-2012BI020630

PATIENT
  Age: 58 Year
  Sex: Female

DRUGS (3)
  1. AVONEX [Suspect]
     Indication: MULTIPLE SCLEROSIS
     Route: 030
     Dates: start: 20110531
  2. INHALER (NOS) [Concomitant]
     Indication: ASTHMA
     Dates: start: 2000
  3. PROVIGIL [Concomitant]
     Indication: FATIGUE

REACTIONS (9)
  - Transplant rejection [Recovered/Resolved]
  - Hypoaesthesia [Recovered/Resolved]
  - Chest pain [Recovered/Resolved]
  - Pain in extremity [Recovered/Resolved]
  - Muscle tightness [Recovered/Resolved]
  - Dyspnoea [Recovered/Resolved]
  - Multiple sclerosis relapse [Recovered/Resolved]
  - Ankle arthroplasty [Recovered/Resolved]
  - Alopecia [Recovered/Resolved]
